FAERS Safety Report 6038918-9 (Version None)
Quarter: 2009Q1

REPORT INFORMATION
  Report Type: 
  Country: None (occurrence: None)
  Receive Date: 20090114
  Receipt Date: 20090114
  Transmission Date: 20090719
  Serious: Yes (Other)
  Sender: FDA-Public Use
  Company Number: None

PATIENT
  Age: 30 Year
  Sex: Female
  Weight: 47.6277 kg

DRUGS (1)
  1. DEPO-PROVERA [Suspect]
     Indication: CONTRACEPTION
     Dosage: 90- DAYS IM
     Route: 030
     Dates: start: 19940601, end: 19990601

REACTIONS (9)
  - ALOPECIA [None]
  - AMENORRHOEA [None]
  - ANDROGENS INCREASED [None]
  - ANOVULATORY CYCLE [None]
  - DEPRESSION [None]
  - INFERTILITY [None]
  - INSULIN RESISTANCE [None]
  - MENORRHAGIA [None]
  - PROGESTERONE DECREASED [None]
